FAERS Safety Report 7638445-9 (Version None)
Quarter: 2011Q3

REPORT INFORMATION
  Report Type: 
  Country: None (occurrence: None)
  Receive Date: 20110727
  Receipt Date: 20110713
  Transmission Date: 20111222
  Serious: Yes (Other)
  Sender: FDA-Public Use
  Company Number: FR-ELI_LILLY_AND_COMPANY-FR201107003375

PATIENT
  Age: 85 Year
  Sex: Female

DRUGS (1)
  1. FORTEO [Suspect]
     Indication: OSTEITIS DEFORMANS
     Dosage: UNK
     Route: 058
     Dates: start: 20060101, end: 20060101

REACTIONS (5)
  - OFF LABEL USE [None]
  - FEMUR FRACTURE [None]
  - WRIST FRACTURE [None]
  - NAUSEA [None]
  - VOMITING [None]
